FAERS Safety Report 5812077-7 (Version None)
Quarter: 2008Q3

REPORT INFORMATION
  Report Type: 
  Country: None (occurrence: None)
  Receive Date: 20080716
  Receipt Date: 20080627
  Transmission Date: 20090109
  Serious: No
  Sender: FDA-Public Use
  Company Number: US-BOEHRINGER INGELHEIM GMBH, GERMANY-2008-BP-10054BP

PATIENT
  Age: 42 Year
  Sex: Female

DRUGS (1)
  1. MIRAPEX [Suspect]

REACTIONS (1)
  - PALPITATIONS [None]
